FAERS Safety Report 15764811 (Version 1)
Quarter: 2018Q4

REPORT INFORMATION
  Report Type: Report from Study
  Country: TR (occurrence: AT)
  Receive Date: 20181227
  Receipt Date: 20181227
  Transmission Date: 20190205
  Serious: Yes (Other)
  Sender: FDA-Public Use
  Company Number: TR-ROCHE-2236705

PATIENT
  Age: 69 Year
  Sex: Male

DRUGS (2)
  1. MYCOPHENOLATE MOFETIL. [Suspect]
     Active Substance: MYCOPHENOLATE MOFETIL
     Indication: PROPHYLAXIS AGAINST TRANSPLANT REJECTION
     Route: 065
  2. CYCLOSPORINE. [Suspect]
     Active Substance: CYCLOSPORINE
     Indication: PROPHYLAXIS AGAINST TRANSPLANT REJECTION
     Route: 065

REACTIONS (4)
  - Epstein-Barr virus associated lymphoproliferative disorder [Recovered/Resolved]
  - Squamous cell carcinoma [Unknown]
  - Actinic keratosis [Unknown]
  - Cytomegalovirus infection [Unknown]
